FAERS Safety Report 6172010-8 (Version None)
Quarter: 2009Q2

REPORT INFORMATION
  Report Type: 
  Country: None (occurrence: None)
  Receive Date: 20090429
  Receipt Date: 20090422
  Transmission Date: 20091009
  Serious: Yes (Hospitalization)
  Sender: FDA-Public Use
  Company Number: US-ELI_LILLY_AND_COMPANY-US200904004930

PATIENT
  Sex: Male
  Weight: 102.95 kg

DRUGS (15)
  1. BYETTA [Suspect]
     Indication: TYPE 2 DIABETES MELLITUS
     Dosage: 5 UG, 2/D
     Route: 058
     Dates: start: 20081101, end: 20081201
  2. BYETTA [Suspect]
     Dosage: 10 UG, 2/D
     Route: 058
     Dates: start: 20090101, end: 20090201
  3. JANUVIA [Concomitant]
     Indication: TYPE 2 DIABETES MELLITUS
     Dosage: UNK, UNKNOWN
  4. GLIMEPIRIDE [Concomitant]
     Indication: TYPE 2 DIABETES MELLITUS
     Dosage: UNK, UNKNOWN
  5. AMIODARONE [Concomitant]
     Indication: CARDIAC DISORDER
     Dosage: UNK, UNKNOWN
  6. PRAVASTATIN [Concomitant]
     Indication: BLOOD CHOLESTEROL INCREASED
     Dosage: UNK, UNKNOWN
  7. OTHER PLAIN VITAMIN PREPARATIONS [Concomitant]
     Dosage: UNK, UNKNOWN
  8. FERROUS SULFATE TAB [Concomitant]
     Indication: MINERAL SUPPLEMENTATION
     Dosage: UNK, UNKNOWN
  9. PLAVIX [Concomitant]
     Indication: CARDIAC OPERATION
     Dosage: UNK, UNKNOWN
  10. ALTACE [Concomitant]
     Indication: HYPERTENSION
     Dosage: UNK, UNKNOWN
  11. MULTIPLE VITAMINS [Concomitant]
     Dosage: UNK, UNKNOWN
  12. LEXAPRO [Concomitant]
     Indication: DEPRESSION
     Dosage: UNK, UNKNOWN
  13. UROXATRAL [Concomitant]
     Indication: BLADDER DISORDER
     Dosage: UNK, UNKNOWN
  14. ASPIRIN [Concomitant]
     Dosage: UNK, UNKNOWN
  15. TEKTURNA                           /01763601/ [Concomitant]
     Indication: BLOOD PRESSURE
     Dosage: UNK, UNKNOWN

REACTIONS (5)
  - BLOOD GLUCOSE DECREASED [None]
  - CORONARY ARTERY OCCLUSION [None]
  - HYPERHIDROSIS [None]
  - TREMOR [None]
  - WEIGHT DECREASED [None]
